FAERS Safety Report 15547774 (Version 1)
Quarter: 2018Q4

REPORT INFORMATION
  Report Type: Spontaneous
  Country: US (occurrence: US)
  Receive Date: 20181024
  Receipt Date: 20181024
  Transmission Date: 20190205
  Serious: Yes (Hospitalization)
  Sender: FDA-Public Use
  Company Number: None

PATIENT
  Age: 42 Year
  Sex: Female
  Weight: 79.6 kg

DRUGS (7)
  1. DEXTROSE SOLUTION [Concomitant]
     Active Substance: DEXTROSE
     Dates: start: 20181018, end: 20181018
  2. LINEZOLID. [Concomitant]
     Active Substance: LINEZOLID
     Dates: start: 20181018, end: 20181018
  3. CALCIUM GLUCONATE. [Concomitant]
     Active Substance: CALCIUM GLUCONATE
     Dates: start: 20181018, end: 20181018
  4. MEROPENEM. [Suspect]
     Active Substance: MEROPENEM
     Indication: INFECTION
     Dosage: ?          OTHER FREQUENCY:ONCE;?
     Route: 040
     Dates: start: 20181018, end: 20181018
  5. ALBUTEROL NEBULIZER [Concomitant]
     Active Substance: ALBUTEROL
     Dates: start: 20181018, end: 20181018
  6. SODIUM CHLORIDE BOLUS [Concomitant]
     Dates: start: 20181018, end: 20181018
  7. HUMULIN NOS [Concomitant]
     Active Substance: INSULIN HUMAN
     Dates: start: 20181018, end: 20181018

REACTIONS (1)
  - Face oedema [None]

NARRATIVE: CASE EVENT DATE: 20181019
